FAERS Safety Report 18023248 (Version 1)
Quarter: 2020Q3

REPORT INFORMATION
  Report Type: Spontaneous
  Country: US (occurrence: US)
  Receive Date: 20200714
  Receipt Date: 20200714
  Transmission Date: 20201103
  Serious: Yes (Hospitalization)
  Sender: FDA-Public Use
  Company Number: US-KOWA-20US001948

PATIENT
  Age: 28 Year
  Sex: Female

DRUGS (11)
  1. BACILLUS COAGULANS [Concomitant]
     Active Substance: BACILLUS COAGULANS
  2. INSULIN REGULAR HM [Concomitant]
     Active Substance: INSULIN NOS
  3. ATORVASTATIN CALCIUM. [Concomitant]
     Active Substance: ATORVASTATIN CALCIUM
  4. PANCRELIPASE. [Concomitant]
     Active Substance: PANCRELIPASE
  5. PRENATAL VITAMINS [MINERALS NOS;VITAMINS NOS] [Concomitant]
     Active Substance: MINERALS\VITAMINS
  6. LISINOPRIL DIHYDRATE [Concomitant]
     Active Substance: LISINOPRIL
  7. FENOFIBRATE. [Suspect]
     Active Substance: FENOFIBRATE
     Dosage: UNK
  8. OMEPRAZOLE. [Concomitant]
     Active Substance: OMEPRAZOLE
  9. MAALOX ADVANCED [CALCIUM CARBONATE;SIMETICONE] [Concomitant]
  10. LEVEMIR [Concomitant]
     Active Substance: INSULIN DETEMIR
     Dosage: 50 UNITS QHS
  11. OMEGA?3?ACID ETHYL ESTER [Concomitant]
     Active Substance: OMEGA-3-ACID ETHYL ESTERS

REACTIONS (2)
  - Hypertriglyceridaemia [Unknown]
  - Pancreatitis acute [Unknown]
